FAERS Safety Report 7094206-3 (Version None)
Quarter: 2010Q4

REPORT INFORMATION
  Report Type: 
  Country: None (occurrence: None)
  Receive Date: 20101102
  Receipt Date: 20101020
  Transmission Date: 20110411
  Serious: Yes (Other)
  Sender: FDA-Public Use
  Company Number: 2010EU005518

PATIENT
  Age: 7 Year
  Sex: Male

DRUGS (3)
  1. TACROLIMUS [Suspect]
     Indication: DERMATITIS ATOPIC
     Dosage: 0.03%, PRN, TOPICAL
     Route: 061
     Dates: start: 20040801
  2. PREDNISONE TAB [Concomitant]
  3. CORTICOSTEROIDS [Concomitant]

REACTIONS (2)
  - ASTHMA [None]
  - LYMPH NODE PALPABLE [None]
